FAERS Safety Report 7304377-9 (Version None)
Quarter: 2011Q1

REPORT INFORMATION
  Report Type: 
  Country: None (occurrence: None)
  Receive Date: 20110221
  Receipt Date: 20110209
  Transmission Date: 20110831
  Serious: Yes (Other)
  Sender: FDA-Public Use
  Company Number: GR-GILEAD-2011-0036333

PATIENT
  Age: 74 Year

DRUGS (4)
  1. METFORMIN [Concomitant]
  2. VIREAD [Suspect]
     Indication: HIV INFECTION
  3. EMTRIVA [Suspect]
     Indication: HIV INFECTION
  4. EFAVIRENZ [Concomitant]

REACTIONS (3)
  - DRUG INTERACTION [None]
  - RENAL FAILURE ACUTE [None]
  - LACTIC ACIDOSIS [None]
